FAERS Safety Report 6812567-4 (Version None)
Quarter: 2010Q3

REPORT INFORMATION
  Report Type: 
  Country: None (occurrence: None)
  Receive Date: 20100701
  Receipt Date: 20100621
  Transmission Date: 20110219
  Serious: Yes (Other)
  Sender: FDA-Public Use
  Company Number: KR-PFIZER INC-2010077205

PATIENT
  Age: 57 Year
  Sex: Male

DRUGS (4)
  1. NEURONTIN [Suspect]
     Indication: MUSCLE INJURY
     Dosage: 100 MG, IN THE MORNING AND IN THE EVENING
     Route: 048
  2. OPALMON [Suspect]
     Indication: MUSCLE INJURY
     Dosage: UNK
  3. METHYLPREDNISOLONE [Suspect]
     Indication: MUSCLE INJURY
     Dosage: UNK
  4. ACECLOFENAC [Suspect]
     Indication: MUSCLE INJURY
     Dosage: UNK

REACTIONS (7)
  - CATARACT [None]
  - MASKED FACIES [None]
  - MUSCLE SPASMS [None]
  - PARALYSIS [None]
  - PRURITUS [None]
  - RASH GENERALISED [None]
  - SENSORY DISTURBANCE [None]
